FAERS Safety Report 10150926 (Version 2)
Quarter: 2014Q2

REPORT INFORMATION
  Report Type: Spontaneous
  Country: US (occurrence: US)
  Receive Date: 20140502
  Receipt Date: 20140527
  Transmission Date: 20141212
  Serious: Yes (Death, Hospitalization)
  Sender: FDA-Public Use
  Company Number: US-BAXTER-2014BAX020792

PATIENT
  Sex: Female

DRUGS (1)
  1. DIANEAL LOW CALCIUM [Suspect]
     Indication: RENAL FAILURE CHRONIC
     Route: 032
     Dates: start: 2010, end: 20140423

REACTIONS (12)
  - Fall [Fatal]
  - Limb injury [Fatal]
  - Gangrene [Fatal]
  - Localised infection [Fatal]
  - Disease complication [Fatal]
  - Wound infection [Fatal]
  - Necrosis [Not Recovered/Not Resolved]
  - Gastrointestinal ulcer haemorrhage [Not Recovered/Not Resolved]
  - Pneumonia [Not Recovered/Not Resolved]
  - Abdominal pain [Not Recovered/Not Resolved]
  - Laceration [Recovered/Resolved with Sequelae]
  - Wound [Unknown]
